FAERS Safety Report 4646887-9 (Version None)
Quarter: 2005Q2

REPORT INFORMATION
  Report Type: 
  Country: None (occurrence: None)
  Receive Date: 20050427
  Receipt Date: 20050414
  Transmission Date: 20051028
  Serious: Yes (Hospitalization)
  Sender: FDA-Public Use
  Company Number: FR-MERCK-0504FRA00043

PATIENT
  Age: 64 Year
  Sex: Female
  Weight: 49 kg

DRUGS (3)
  1. TRUSOPT [Suspect]
     Route: 047
     Dates: start: 20050114
  2. BETAMETHASONE [Suspect]
     Route: 048
     Dates: start: 20050221, end: 20050225
  3. AZITHROMYCIN [Suspect]
     Route: 048
     Dates: start: 20050221, end: 20050225

REACTIONS (3)
  - EXANTHEM [None]
  - PRURITUS [None]
  - RASH PUSTULAR [None]
